FAERS Safety Report 10033029 (Version 2)
Quarter: 2014Q2

REPORT INFORMATION
  Report Type: Spontaneous
  Country: US (occurrence: US)
  Receive Date: 20140324
  Receipt Date: 20140421
  Transmission Date: 20141212
  Serious: Yes (Hospitalization, Other)
  Sender: FDA-Public Use
  Company Number: US-UCBSA-114786

PATIENT
  Age: 51 Year
  Sex: Female
  Weight: 47.6 kg

DRUGS (8)
  1. CIMZIA [Suspect]
     Indication: CROHN^S DISEASE
     Route: 058
     Dates: start: 201311
  2. PREDNISONE [Suspect]
     Dosage: 4 TABLETS EVERY DAY, 40 MG, 160 MG
     Dates: end: 2014
  3. PREDNISONE [Suspect]
     Route: 042
     Dates: start: 2014, end: 2014
  4. PREDNISONE [Suspect]
     Dosage: DOSE REDUCED
     Dates: start: 2014
  5. AZACOLE [Concomitant]
     Indication: CROHN^S DISEASE
     Route: 048
  6. EFFEXOR [Concomitant]
     Indication: DEPRESSION
     Dosage: 150 MG IN AM AND 75 MG AT NIGHT
     Route: 048
  7. EFFEXOR [Concomitant]
     Indication: ANXIETY
     Dosage: 150 MG IN AM AND 75 MG AT NIGHT
     Route: 048
  8. TOPAMAX [Concomitant]
     Indication: MIGRAINE
     Route: 048

REACTIONS (4)
  - Vision blurred [Recovering/Resolving]
  - Gastrointestinal inflammation [Recovered/Resolved]
  - Clostridium difficile infection [Recovered/Resolved]
  - Crohn^s disease [Recovering/Resolving]
